FAERS Safety Report 8842189 (Version 1)
Quarter: 2012Q4

REPORT INFORMATION
  Report Type: 
  Country: CN (occurrence: CN)
  Receive Date: 20121016
  Receipt Date: 20121016
  Transmission Date: 20130627
  Serious: Yes (Death)
  Sender: FDA-Public Use
  Company Number: PHHY2012CN091522

PATIENT

DRUGS (12)
  1. CICLOSPORIN [Suspect]
     Indication: PROPHYLAXIS AGAINST GRAFT VERSUS HOST DISEASE
     Dosage: 3 mg/kg per day
     Route: 042
  2. METHOTREXATE [Concomitant]
     Indication: PROPHYLAXIS AGAINST GRAFT VERSUS HOST DISEASE
     Dosage: 15 mg/m2, on day +1
  3. METHOTREXATE [Concomitant]
     Dosage: 10 mg/m2, on day +3,+6 and +11 days
  4. METHOTREXATE [Concomitant]
     Dosage: 3 mg/kg, per day
     Route: 048
  5. MYCOPHENOLATE MOFETIL [Concomitant]
     Indication: PROPHYLAXIS AGAINST GRAFT VERSUS HOST DISEASE
     Dosage: 15 mg/kg, BID
  6. SEMUSTINE [Concomitant]
     Indication: SURGICAL PRECONDITIONING
  7. CYTARABINE [Concomitant]
     Indication: SURGICAL PRECONDITIONING
  8. BUSULFAN [Concomitant]
     Indication: SURGICAL PRECONDITIONING
  9. CYCLOPHOSPHAMIDE [Concomitant]
     Indication: SURGICAL PRECONDITIONING
  10. GANCICLOVIR [Concomitant]
     Indication: INFECTION PROPHYLAXIS
  11. PROSTAGLANDIN E1 [Concomitant]
  12. HEPARIN [Concomitant]

REACTIONS (1)
  - Interstitial lung disease [Fatal]
